FAERS Safety Report 23901623 (Version 1)
Quarter: 2024Q2

REPORT INFORMATION
  Report Type: Spontaneous
  Country: US (occurrence: None)
  Receive Date: 20240526
  Receipt Date: 20240526
  Transmission Date: 20240716
  Serious: No
  Sender: FDA-Public Use
  Company Number: US-ROCHE-3317291

PATIENT
  Age: 50 Year
  Sex: Female

DRUGS (1)
  1. OCREVUS [Suspect]
     Active Substance: OCRELIZUMAB
     Indication: Multiple sclerosis
     Dosage: INITIAL DOSE  OF 300MG ;ONGOING: YES
     Route: 041
     Dates: start: 20230221

REACTIONS (3)
  - Tongue discolouration [Recovered/Resolved]
  - Oral mucosal blistering [Recovered/Resolved]
  - Tongue exfoliation [Recovered/Resolved]

NARRATIVE: CASE EVENT DATE: 20230224
